FAERS Safety Report 7015742-1 (Version None)
Quarter: 2010Q3

REPORT INFORMATION
  Report Type: 
  Country: None (occurrence: None)
  Receive Date: 20100927
  Receipt Date: 20100602
  Transmission Date: 20110219
  Serious: No
  Sender: FDA-Public Use
  Company Number: US-ASTRAZENECA-2010SE25467

PATIENT
  Age: 629 Month
  Sex: Female
  Weight: 57.2 kg

DRUGS (4)
  1. ARIMIDEX [Suspect]
     Indication: OVARIAN CANCER
     Route: 048
     Dates: start: 20100301
  2. IBUPROFEN [Concomitant]
  3. LORAZEPAM [Concomitant]
  4. VITAMINS [Concomitant]

REACTIONS (6)
  - ARTHRALGIA [None]
  - ASTHENIA [None]
  - GAIT DISTURBANCE [None]
  - NECK PAIN [None]
  - OSTEOARTHRITIS [None]
  - PAIN IN EXTREMITY [None]
